FAERS Safety Report 5842282-5 (Version None)
Quarter: 2008Q3

REPORT INFORMATION
  Report Type: 
  Country: None (occurrence: None)
  Receive Date: 20080812
  Receipt Date: 20080804
  Transmission Date: 20090109
  Serious: Yes (Other)
  Sender: FDA-Public Use
  Company Number: GB-ROCHE-573633

PATIENT
  Sex: Male
  Weight: 139.7 kg

DRUGS (11)
  1. ORLISTAT [Suspect]
     Indication: OBESITY
     Route: 048
     Dates: start: 20070321
  2. ALLOPURINOL [Concomitant]
     Route: 048
  3. AMLODIPINE [Concomitant]
     Route: 048
  4. ASPIRIN [Concomitant]
     Dates: start: 19930727, end: 20080605
  5. ATENOLOL [Concomitant]
     Indication: HYPERTENSION
     Route: 048
     Dates: start: 19910816
  6. ATORVASTATIN [Concomitant]
     Indication: HYPERLIPIDAEMIA
     Route: 048
     Dates: start: 20000630
  7. CLOPIDOGREL [Concomitant]
     Route: 048
  8. ENALAPRIL MALEATE [Concomitant]
     Route: 048
  9. EZETIMIBE [Concomitant]
     Route: 048
     Dates: start: 20061003
  10. METFORMIN HCL [Concomitant]
     Route: 048
     Dates: start: 20020321
  11. ROSIGLITAZONE [Concomitant]
     Dates: start: 20040618, end: 20080331

REACTIONS (1)
  - CEREBROVASCULAR ACCIDENT [None]
